FAERS Safety Report 19490317 (Version 3)
Quarter: 2021Q3

REPORT INFORMATION
  Report Type: Spontaneous
  Country: US (occurrence: US)
  Receive Date: 20210705
  Receipt Date: 20210911
  Transmission Date: 20211014
  Serious: No
  Sender: FDA-Public Use
  Company Number: US-JNJFOC-20210657968

PATIENT
  Age: 5 Decade
  Sex: Female

DRUGS (3)
  1. CIPRO [Concomitant]
     Active Substance: CIPROFLOXACIN HYDROCHLORIDE
     Indication: URINARY TRACT INFECTION
     Dates: start: 2009
  2. ELMIRON [Suspect]
     Active Substance: PENTOSAN POLYSULFATE SODIUM
     Indication: CYSTITIS INTERSTITIAL
     Dosage: 2?3 PILLS EACH DAY
     Route: 048
     Dates: start: 2000, end: 2015
  3. HYDROCODONE [Concomitant]
     Active Substance: HYDROCODONE
     Indication: RHEUMATOID ARTHRITIS
     Dates: start: 2016, end: 2021

REACTIONS (6)
  - Vitreous floaters [Unknown]
  - Product use issue [Unknown]
  - Off label use [Unknown]
  - Vision blurred [Unknown]
  - Visual impairment [Unknown]
  - Delayed dark adaptation [Unknown]

NARRATIVE: CASE EVENT DATE: 2000
